FAERS Safety Report 14634879 (Version 1)
Quarter: 2018Q1

REPORT INFORMATION
  Report Type: Spontaneous
  Country: US (occurrence: US)
  Receive Date: 20180314
  Receipt Date: 20180314
  Transmission Date: 20180509
  Serious: No
  Sender: FDA-Public Use
  Company Number: US-BAYER-2018-046641

PATIENT
  Sex: Male

DRUGS (2)
  1. MIRALAX [Suspect]
     Active Substance: POLYETHYLENE GLYCOL 3350
     Dosage: 119 G, IN 32 OUNCES OF GATORADE
     Route: 048
     Dates: start: 20180309
  2. MIRALAX [Suspect]
     Active Substance: POLYETHYLENE GLYCOL 3350
     Dosage: 119 G, IN 32 OUNCES OF GATORADE
     Route: 048
     Dates: start: 20180308

REACTIONS (3)
  - Product use in unapproved indication [Unknown]
  - Wrong technique in product usage process [None]
  - Off label use [Unknown]

NARRATIVE: CASE EVENT DATE: 20180308
